FAERS Safety Report 21610980 (Version 1)
Quarter: 2022Q4

REPORT INFORMATION
  Report Type: Spontaneous
  Country: FR (occurrence: FR)
  Receive Date: 20221117
  Receipt Date: 20221117
  Transmission Date: 20230112
  Serious: Yes (Other)
  Sender: FDA-Public Use
  Company Number: FR-PERRIGO-22FR014985

PATIENT
  Age: 62 Year

DRUGS (4)
  1. CIMETIDINE [Suspect]
     Active Substance: CIMETIDINE
     Indication: Prophylaxis
     Dosage: UNK
     Route: 048
  2. RACECADOTRIL [Suspect]
     Active Substance: RACECADOTRIL
     Indication: Diarrhoea
     Route: 065
  3. ACETAZOLAMIDE [Suspect]
     Active Substance: ACETAZOLAMIDE
     Indication: Product used for unknown indication
     Route: 065
  4. ENOXAPARIN [Suspect]
     Active Substance: ENOXAPARIN
     Indication: Product used for unknown indication
     Route: 065

REACTIONS (1)
  - Drug reaction with eosinophilia and systemic symptoms [Recovered/Resolved]
